FAERS Safety Report 5943056-7 (Version None)
Quarter: 2008Q4

REPORT INFORMATION
  Report Type: 
  Country: None (occurrence: None)
  Receive Date: 20081106
  Receipt Date: 20081029
  Transmission Date: 20090506
  Serious: Yes (Hospitalization, Disabling)
  Sender: FDA-Public Use
  Company Number: GB-AMGEN-US316867

PATIENT
  Age: 65 Year
  Sex: Male
  Weight: 75.6 kg

DRUGS (8)
  1. ENBREL [Suspect]
     Indication: RHEUMATOID ARTHRITIS
     Route: 058
     Dates: start: 20070823, end: 20071109
  2. METHOTREXATE [Suspect]
     Indication: RHEUMATOID ARTHRITIS
     Route: 065
     Dates: start: 19930101, end: 20071109
  3. ALENDRONIC ACID [Concomitant]
     Route: 065
  4. VERAPAMIL [Concomitant]
     Dosage: 240MG, FREQUENCY UNKNOWN
     Route: 065
  5. LANSOPRAZOLE [Concomitant]
     Route: 065
  6. ORAMORPH SR [Concomitant]
     Dosage: UNKNOWN
     Route: 065
  7. PREDNISOLONE [Concomitant]
     Route: 065
  8. ATORVASTATIN CALCIUM [Concomitant]
     Route: 065

REACTIONS (1)
  - ORGANISING PNEUMONIA [None]
